FAERS Safety Report 12158201 (Version 1)
Quarter: 2016Q1

REPORT INFORMATION
  Report Type: Spontaneous
  Country: US (occurrence: US)
  Receive Date: 20160308
  Receipt Date: 20160308
  Transmission Date: 20160526
  Serious: Yes (Other)
  Sender: FDA-Public Use
  Company Number: US-JNJFOC-20150303294

PATIENT
  Age: 67 Year
  Sex: Male

DRUGS (6)
  1. BUSPIRONE [Concomitant]
     Active Substance: BUSPIRONE HYDROCHLORIDE
  2. LOVASTATIN. [Concomitant]
     Active Substance: LOVASTATIN
  3. ATENOLOL. [Concomitant]
     Active Substance: ATENOLOL
  4. IMBRUVICA [Suspect]
     Active Substance: IBRUTINIB
     Indication: CHRONIC LYMPHOCYTIC LEUKAEMIA
     Route: 048
     Dates: start: 20140903, end: 20150224
  5. IMBRUVICA [Suspect]
     Active Substance: IBRUTINIB
     Indication: CHRONIC LYMPHOCYTIC LEUKAEMIA
     Route: 048
     Dates: start: 20140818, end: 20140903
  6. DOCUSATE [Concomitant]
     Active Substance: DOCUSATE

REACTIONS (3)
  - Oesophageal carcinoma [Unknown]
  - White blood cell count decreased [Not Recovered/Not Resolved]
  - Platelet count decreased [Not Recovered/Not Resolved]

NARRATIVE: CASE EVENT DATE: 20140903
